FAERS Safety Report 11008488 (Version 1)
Quarter: 2015Q1

REPORT INFORMATION
  Report Type: Spontaneous
  Country: US (occurrence: None)
  Receive Date: 20150318
  Receipt Date: 20150318
  Transmission Date: 20150721
  Serious: Yes (Disabling)
  Sender: FDA-Public Use
  Company Number: 2014014323

PATIENT
  Age: 65 Year
  Sex: Female

DRUGS (4)
  1. PRAMIPEXOLE (PRAMIPEXOLE) [Concomitant]
     Active Substance: PRAMIPEXOLE
  2. NEUPRO [Suspect]
     Active Substance: ROTIGOTINE
     Indication: RESTLESS LEGS SYNDROME
     Dosage: 4 MG, ONCE DAILY (QD) (APPLY ONE PATCH DAILY TO SKIN)
     Route: 062
     Dates: start: 2014
  3. CORTISONE [Suspect]
     Active Substance: CORTISONE\HYDROCORTISONE
     Indication: PRODUCT USED FOR UNKNOWN INDICATION
     Dosage: UNKNOWN DOSE, ?
  4. LIPITOR [Concomitant]
     Active Substance: ATORVASTATIN CALCIUM

REACTIONS (5)
  - Insomnia [None]
  - Off label use [None]
  - Restless legs syndrome [None]
  - Overdose [None]
  - Glycosylated haemoglobin increased [None]

NARRATIVE: CASE EVENT DATE: 201404
